FAERS Safety Report 20550857 (Version 1)
Quarter: 2022Q1

REPORT INFORMATION
  Report Type: Spontaneous
  Country: IR (occurrence: IR)
  Receive Date: 20220304
  Receipt Date: 20220304
  Transmission Date: 20220423
  Serious: Yes (Hospitalization, Other)
  Sender: FDA-Public Use
  Company Number: IR-AMGEN-IRNSP2022036730

PATIENT

DRUGS (5)
  1. FILGRASTIM [Suspect]
     Active Substance: FILGRASTIM
     Indication: Autologous haematopoietic stem cell transplant
     Dosage: 10-16 UG/KG/DAY FOR MOBILIZATION
     Route: 065
  2. FILGRASTIM [Suspect]
     Active Substance: FILGRASTIM
     Dosage: 5-10 UG/KG/DAY FROM DAY +5 FOR THE ENGRAFTMENT PHASE
     Route: 065
  3. MELATONIN [Suspect]
     Active Substance: MELATONIN
     Indication: Autologous haematopoietic stem cell transplant
     Dosage: 9 MG SINGLE DOSE 30 MIN BEFORE APHERESIS SESSION
     Route: 065
  4. MELATONIN [Suspect]
     Active Substance: MELATONIN
     Dosage: 3 MG TWICE DAILY FROM 1 UNTIL ENGRAFTMENT)
     Route: 065
  5. PLERIXAFOR [Concomitant]
     Active Substance: PLERIXAFOR
     Dosage: UNK

REACTIONS (6)
  - Neutropenia [Recovered/Resolved]
  - Unevaluable event [Recovered/Resolved]
  - Depression [Not Recovered/Not Resolved]
  - Dyspepsia [Unknown]
  - Therapeutic response decreased [Unknown]
  - Insomnia [Recovered/Resolved]
